FAERS Safety Report 23534760 (Version 1)
Quarter: 2024Q1

REPORT INFORMATION
  Report Type: Report from Study
  Country: GB (occurrence: GB)
  Receive Date: 20240217
  Receipt Date: 20240217
  Transmission Date: 20240410
  Serious: Yes (Hospitalization)
  Sender: FDA-Public Use
  Company Number: GB-ABBVIE-5641909

PATIENT
  Age: 72 Year
  Sex: Male

DRUGS (10)
  1. SKYRIZI [Suspect]
     Active Substance: RISANKIZUMAB-RZAA
     Indication: Psoriasis
     Dosage: FORM STRENGTH: 150MILLIGRAM
     Route: 058
     Dates: start: 20221101
  2. SOLIFENACIN SUCCINATE [Concomitant]
     Active Substance: SOLIFENACIN SUCCINATE
     Indication: Product used for unknown indication
     Dates: start: 20200302
  3. ATORVASTATIN [Concomitant]
     Active Substance: ATORVASTATIN
     Indication: Product used for unknown indication
     Dates: start: 20200302
  4. FOLIC ACID [Concomitant]
     Active Substance: FOLIC ACID
     Indication: Product used for unknown indication
     Dates: start: 20180513
  5. PRUCALOPRIDE [Concomitant]
     Active Substance: PRUCALOPRIDE
     Indication: Product used for unknown indication
     Dates: start: 20191105
  6. METFORMIN [Concomitant]
     Active Substance: METFORMIN HYDROCHLORIDE
     Indication: Product used for unknown indication
     Dates: start: 20201001
  7. COCODAMOL [Concomitant]
     Active Substance: ACETAMINOPHEN\CODEINE PHOSPHATE
     Indication: Product used for unknown indication
     Dates: start: 20220818
  8. RAMIPRIL [Concomitant]
     Active Substance: RAMIPRIL
     Indication: Product used for unknown indication
     Dates: start: 20221123
  9. CALCIUM CARBONATE\CHOLECALCIFEROL [Concomitant]
     Active Substance: CALCIUM CARBONATE\CHOLECALCIFEROL
     Indication: Product used for unknown indication
     Dates: start: 20201231
  10. CYCLOSPORINE [Concomitant]
     Active Substance: CYCLOSPORINE
     Indication: Product used for unknown indication
     Dates: start: 20220818

REACTIONS (8)
  - Chest pain [Not Recovered/Not Resolved]
  - Electrocardiogram PR prolongation [Not Recovered/Not Resolved]
  - Atrioventricular block first degree [Not Recovered/Not Resolved]
  - Troponin abnormal [Not Recovered/Not Resolved]
  - Pain [Not Recovered/Not Resolved]
  - Acute myocardial infarction [Not Recovered/Not Resolved]
  - Ejection fraction decreased [Not Recovered/Not Resolved]
  - Arteriosclerosis coronary artery [Unknown]

NARRATIVE: CASE EVENT DATE: 20231011
